FAERS Safety Report 4965225-5 (Version None)
Quarter: 2006Q1

REPORT INFORMATION
  Report Type: 
  Country: None (occurrence: None)
  Receive Date: 20060201
  Receipt Date: 20051214
  Transmission Date: 20060701
  Serious: No
  Sender: FDA-Public Use
  Company Number: FACT0500730

PATIENT
  Age: 37 Year
  Sex: Female
  Weight: 64.9 kg

DRUGS (3)
  1. FACTIVE [Suspect]
     Indication: RESPIRATORY TRACT INFECTION BACTERIAL
     Dosage: QD ORAL
     Route: 048
     Dates: start: 20051206, end: 20051213
  2. GUAIFENESIN PSE (GUAIFENESIN, PSEUDOEPHEDRINE HYDROCHLORIDE) [Concomitant]
  3. SYNTHROID [Concomitant]

REACTIONS (1)
  - RASH GENERALISED [None]
